FAERS Safety Report 10185872 (Version 1)
Quarter: 2014Q2

REPORT INFORMATION
  Report Type: Spontaneous
  Country: US (occurrence: None)
  Receive Date: 20140520
  Receipt Date: 20140520
  Transmission Date: 20141212
  Serious: Yes (Hospitalization)
  Sender: FDA-Public Use
  Company Number: None

PATIENT
  Age: 53 Year
  Sex: Male
  Weight: 70.7 kg

DRUGS (1)
  1. OXYCODONE [Suspect]
     Indication: PAIN
     Dosage: 1-2 TAB PRN PO
     Route: 048
     Dates: start: 20140419, end: 20140424

REACTIONS (7)
  - Nausea [None]
  - Agitation [None]
  - Anxiety [None]
  - Anger [None]
  - Mental impairment [None]
  - Feeling abnormal [None]
  - Insomnia [None]
